FAERS Safety Report 17273658 (Version 1)
Quarter: 2020Q1

REPORT INFORMATION
  Report Type: Spontaneous
  Country: US (occurrence: US)
  Receive Date: 20191226
  Receipt Date: 20191226
  Transmission Date: 20200409
  Serious: Yes (Hospitalization)
  Sender: FDA-Public Use
  Company Number: None

PATIENT
  Sex: Female

DRUGS (22)
  1. SPIRONOLACT [Concomitant]
     Active Substance: SPIRONOLACTONE
  2. SINGULAIR [Concomitant]
     Active Substance: MONTELUKAST SODIUM
  3. NEXIUM [Concomitant]
     Active Substance: ESOMEPRAZOLE MAGNESIUM
  4. PRAVASTATIN. [Concomitant]
     Active Substance: PRAVASTATIN
  5. METOPROLOL TARTRATE. [Concomitant]
     Active Substance: METOPROLOL TARTRATE
  6. LATANOPROST. [Concomitant]
     Active Substance: LATANOPROST
  7. TYLENOL PM [Concomitant]
     Active Substance: ACETAMINOPHEN\DIPHENHYDRAMINE
  8. PROVENTIL [Concomitant]
     Active Substance: ALBUTEROL
  9. MOTRIN IB [Concomitant]
     Active Substance: IBUPROFEN
  10. HUMIRA [Suspect]
     Active Substance: ADALIMUMAB
     Indication: RHEUMATOID FACTOR
     Dosage: ?          OTHER FREQUENCY:EVERY2WEEKS ;?
     Route: 058
     Dates: start: 201708
  11. METHOTREXATE. [Concomitant]
     Active Substance: METHOTREXATE
  12. LOSARTAN POT [Concomitant]
     Active Substance: LOSARTAN POTASSIUM
  13. DICYCLOMINE [Concomitant]
     Active Substance: DICYCLOMINE HYDROCHLORIDE
  14. CALCIUM CARB SUSPENSION [Concomitant]
  15. ADVAIR DISKU AER HFA [Concomitant]
  16. BONIVA [Concomitant]
     Active Substance: IBANDRONATE SODIUM
  17. VITAMIN B12 [Concomitant]
     Active Substance: CYANOCOBALAMIN
  18. PLAVIX [Concomitant]
     Active Substance: CLOPIDOGREL BISULFATE
  19. VITAMIN D3 [Concomitant]
     Active Substance: CHOLECALCIFEROL
  20. HDROXYCHLOR [Concomitant]
  21. NORVASC [Concomitant]
     Active Substance: AMLODIPINE BESYLATE
  22. TRAVADOL HCL [Concomitant]

REACTIONS (2)
  - Hospice care [None]
  - Ulcer [None]
